FAERS Safety Report 22298940 (Version 1)
Quarter: 2023Q2

REPORT INFORMATION
  Report Type: Spontaneous
  Country: US (occurrence: US)
  Receive Date: 20230509
  Receipt Date: 20230509
  Transmission Date: 20230722
  Serious: No
  Sender: FDA-Public Use
  Company Number: US-009507513-2304USA009251

PATIENT
  Sex: Female

DRUGS (1)
  1. VERQUVO [Suspect]
     Active Substance: VERICIGUAT
     Indication: Cardiovascular event prophylaxis
     Dosage: 10MG TABLETS FREQUENCY UNKNOWN
     Route: 048

REACTIONS (1)
  - Product use in unapproved indication [Unknown]
